FAERS Safety Report 10522883 (Version 2)
Quarter: 2014Q4

REPORT INFORMATION
  Report Type: Spontaneous
  Country: US (occurrence: US)
  Receive Date: 20141016
  Receipt Date: 20141016
  Transmission Date: 20150528
  Serious: Yes (Hospitalization, Other)
  Sender: FDA-Public Use
  Company Number: US-GLAXOSMITHKLINE-B0725689A

PATIENT
  Age: 67 Year
  Sex: Male

DRUGS (1)
  1. AVANDIA [Suspect]
     Active Substance: ROSIGLITAZONE MALEATE
     Indication: DIABETES MELLITUS
     Dosage: 8 MG, QD
     Route: 048
     Dates: start: 20051001, end: 200608

REACTIONS (8)
  - Acute pulmonary oedema [Unknown]
  - Cerebrovascular accident [Recovering/Resolving]
  - Bundle branch block right [Unknown]
  - Transient ischaemic attack [Unknown]
  - Chest pain [Unknown]
  - Dyspnoea [Unknown]
  - Cardiac failure congestive [Unknown]
  - Fall [Unknown]

NARRATIVE: CASE EVENT DATE: 20050525
